FAERS Safety Report 8904098 (Version 1)
Quarter: 2012Q4

REPORT INFORMATION
  Report Type: 
  Country: CA (occurrence: CA)
  Receive Date: 20121112
  Receipt Date: 20121112
  Transmission Date: 20130627
  Serious: Yes (Life-Threatening)
  Sender: FDA-Public Use
  Company Number: CA-ASTRAZENECA-2012SE84859

PATIENT
  Age: 46 Year
  Sex: Male
  Weight: 117.9 kg

DRUGS (3)
  1. ATACAND PLUS [Suspect]
     Route: 048
  2. EXTRA STRENGTH TYLENOL COLD AND SINUS NOS [Suspect]
     Route: 048
  3. OXAZEPAM [Concomitant]

REACTIONS (2)
  - Anaphylactic shock [Unknown]
  - Angioedema [Unknown]
